FAERS Safety Report 4315276-9 (Version None)
Quarter: 2004Q1

REPORT INFORMATION
  Report Type: 
  Country: None (occurrence: None)
  Receive Date: 20040311
  Receipt Date: 20011121
  Transmission Date: 20041129
  Serious: Yes (Life-Threatening)
  Sender: FDA-Public Use
  Company Number: 200120576JP

PATIENT
  Sex: Male
  Weight: 65 kg

DRUGS (10)
  1. ALLEGRA [Suspect]
     Indication: RHINITIS ALLERGIC
     Route: 048
     Dates: start: 20010326, end: 20010617
  2. GASTER [Concomitant]
     Indication: GASTRIC ULCER
     Route: 048
  3. SELBEX [Concomitant]
     Indication: GASTRIC ULCER
     Route: 048
  4. ALDACTONE [Concomitant]
     Indication: HYPERTENSION
     Route: 048
  5. PRERAN [Concomitant]
     Indication: HYPERTENSION
     Route: 048
  6. LENDORM [Concomitant]
     Indication: INSOMNIA
     Route: 048
  7. BERIZYM [Concomitant]
     Indication: HEPATIC FUNCTION ABNORMAL
     Route: 048
  8. GLYCYRRHIZIN [Concomitant]
     Indication: HEPATIC FUNCTION ABNORMAL
     Route: 048
  9. HARNAL [Concomitant]
     Indication: BENIGN PROSTATIC HYPERPLASIA
     Route: 048
  10. UBRETID [Concomitant]
     Indication: BENIGN PROSTATIC HYPERPLASIA
     Route: 048

REACTIONS (11)
  - ABDOMINAL PAIN UPPER [None]
  - ALANINE AMINOTRANSFERASE INCREASED [None]
  - ASPARTATE AMINOTRANSFERASE INCREASED [None]
  - BLOOD BILIRUBIN INCREASED [None]
  - CARDIAC FAILURE [None]
  - CHOLELITHIASIS [None]
  - DEEP VEIN THROMBOSIS [None]
  - DIARRHOEA [None]
  - HEPATIC FUNCTION ABNORMAL [None]
  - HYPOTENSION [None]
  - PRURITUS [None]
